FAERS Safety Report 23756421 (Version 3)
Quarter: 2024Q2

REPORT INFORMATION
  Report Type: Report from Study
  Country: JP (occurrence: JP)
  Receive Date: 20240418
  Receipt Date: 20240501
  Transmission Date: 20240716
  Serious: Yes (Life-Threatening, Other)
  Sender: FDA-Public Use
  Company Number: JP-ALNYLAM PHARMACEUTICALS, INC.-ALN-2024-002098

PATIENT

DRUGS (1)
  1. AMVUTTRA [Suspect]
     Active Substance: VUTRISIRAN
     Indication: Hereditary neuropathic amyloidosis
     Dosage: UNK
     Route: 058
     Dates: start: 2023, end: 20240202

REACTIONS (1)
  - Adrenal gland cancer [Not Recovered/Not Resolved]

NARRATIVE: CASE EVENT DATE: 20240301
